FAERS Safety Report 5419532-2 (Version None)
Quarter: 2007Q3

REPORT INFORMATION
  Report Type: 
  Country: None (occurrence: None)
  Receive Date: 20070820
  Receipt Date: 20070809
  Transmission Date: 20080115
  Serious: Yes (Other)
  Sender: FDA-Public Use
  Company Number: US-ROCHE-486015

PATIENT
  Age: 47 Year
  Sex: Female

DRUGS (6)
  1. PEGASYS [Suspect]
     Dosage: THE PATIENT COMPLETED 47 WEEKS OF THERAPY
     Route: 065
     Dates: start: 20060731, end: 20070619
  2. RIBAVIRIN [Suspect]
     Dosage: THE PATIENT HAD COMPLETED 47 WEEKS OF THERAPY.
     Route: 065
     Dates: start: 20060731, end: 20070619
  3. ZOLOFT [Concomitant]
     Indication: DRUG USE FOR UNKNOWN INDICATION
     Route: 065
  4. XANAX [Concomitant]
     Indication: DRUG USE FOR UNKNOWN INDICATION
     Route: 065
  5. AMBIEN [Suspect]
     Indication: DRUG USE FOR UNKNOWN INDICATION
     Route: 065
  6. TYLENOL [Concomitant]
     Indication: DRUG USE FOR UNKNOWN INDICATION
     Route: 065

REACTIONS (12)
  - ABNORMAL DREAMS [None]
  - DEPRESSION [None]
  - DIARRHOEA [None]
  - FATIGUE [None]
  - HAEMOGLOBIN DECREASED [None]
  - HYPOTONIA [None]
  - INSOMNIA [None]
  - LOSS OF CONSCIOUSNESS [None]
  - NIGHT SWEATS [None]
  - PARANOIA [None]
  - STRESS [None]
  - WEIGHT DECREASED [None]
